FAERS Safety Report 10311799 (Version 2)
Quarter: 2014Q3

REPORT INFORMATION
  Report Type: Spontaneous
  Country: US (occurrence: None)
  Receive Date: 20140715
  Receipt Date: 20140916
  Transmission Date: 20150326
  Serious: Yes (Hospitalization, Other)
  Sender: FDA-Public Use
  Company Number: 2014AMD00037

PATIENT
  Age: 5 Month
  Sex: Male
  Weight: 6.3 kg

DRUGS (5)
  1. DARAPRIM [Suspect]
     Active Substance: PYRIMETHAMINE
     Indication: HYDROCEPHALUS
     Dosage: 1X/DAY, ORAL
     Route: 048
     Dates: start: 20140213, end: 20140516
  2. SULFADIAZINE. [Concomitant]
     Active Substance: SULFADIAZINE
  3. LEUCOVORIN [Concomitant]
     Active Substance: LEUCOVORIN
  4. BICITRA [Concomitant]
     Active Substance: CITRIC ACID, 1-STEARYL ESTER\SODIUM CITRATE
  5. PEDIATRIC MULTIVITAMIN-IRON [Concomitant]

REACTIONS (4)
  - Neutropenia [None]
  - Leukopenia [None]
  - Pyrexia [None]
  - CSF shunt operation [None]

NARRATIVE: CASE EVENT DATE: 20140501
